FAERS Safety Report 9032816 (Version 2)
Quarter: 2013Q1

REPORT INFORMATION
  Report Type: Spontaneous
  Country: US (occurrence: US)
  Receive Date: 20130128
  Receipt Date: 20130222
  Transmission Date: 20140127
  Serious: No
  Sender: FDA-Public Use
  Company Number: US-BIOGENIDEC-2013BI006061

PATIENT
  Sex: Female

DRUGS (1)
  1. TYSABRI [Suspect]
     Indication: MULTIPLE SCLEROSIS
     Route: 042
     Dates: start: 20110907

REACTIONS (5)
  - Vertigo [Recovered/Resolved]
  - Trigeminal neuralgia [Unknown]
  - Amnesia [Not Recovered/Not Resolved]
  - Fatigue [Unknown]
  - Multiple sclerosis relapse [Not Recovered/Not Resolved]
